APPROVED DRUG PRODUCT: M.V.I.-12 LYOPHILIZED
Active Ingredient: ASCORBIC ACID; BIOTIN; CYANOCOBALAMIN; DEXPANTHENOL; ERGOCALCIFEROL; FOLIC ACID; NIACINAMIDE; PYRIDOXINE; RIBOFLAVIN 5'-PHOSPHATE SODIUM; THIAMINE; VITAMIN A; VITAMIN E
Strength: 100MG/VIAL;0.06MG/VIAL;0.005MG/VIAL;15MG/VIAL;5MCG/VIAL;0.4MG/VIAL;40MG/VIAL;4MG/VIAL;3.6MG/VIAL;3MG/VIAL;1MG/VIAL;10MG/VIAL
Dosage Form/Route: INJECTABLE;INJECTION
Application: N018933 | Product #002
Applicant: TELIGENT PHARMA INC
Approved: Aug 8, 1985 | RLD: No | RS: No | Type: DISCN